FAERS Safety Report 8499113-7 (Version None)
Quarter: 2012Q2

REPORT INFORMATION
  Report Type: 
  Country: None (occurrence: None)
  Receive Date: 20120405
  Receipt Date: 20100216
  Transmission Date: 20120825
  Serious: Yes (Other)
  Sender: FDA-Public Use
  Company Number: PHHY2010US09383

PATIENT
  Age: 80 Year
  Sex: Female

DRUGS (1)
  1. RECLAST [Suspect]
     Dates: start: 20100211, end: 20100211

REACTIONS (4)
  - DYSPHAGIA [None]
  - DRY THROAT [None]
  - DYSPNOEA [None]
  - HYPOAESTHESIA [None]
